FAERS Safety Report 9293651 (Version 1)
Quarter: 2013Q2

REPORT INFORMATION
  Report Type: Spontaneous
  Country: US (occurrence: US)
  Receive Date: 20130516
  Receipt Date: 20130516
  Transmission Date: 20140414
  Serious: Yes (Life-Threatening, Disabling)
  Sender: FDA-Public Use
  Company Number: US-BAYER-2013-060844

PATIENT
  Sex: Female

DRUGS (5)
  1. BEYAZ [Suspect]
  2. GIANVI [Suspect]
  3. YASMIN [Suspect]
  4. YAZ [Suspect]
  5. OCELLA [Suspect]

REACTIONS (8)
  - Cerebrovascular accident [None]
  - Pain [None]
  - General physical health deterioration [None]
  - Anxiety [None]
  - Anhedonia [None]
  - Emotional distress [None]
  - Injury [None]
  - Pain [None]
